FAERS Safety Report 9289195 (Version 1)
Quarter: 2013Q2

REPORT INFORMATION
  Report Type: Spontaneous
  Country: US (occurrence: US)
  Receive Date: 20130514
  Receipt Date: 20130514
  Transmission Date: 20140414
  Serious: Yes (Other)
  Sender: FDA-Public Use
  Company Number: US-PURDUE-USA-2013-0102006

PATIENT
  Age: 65 Year
  Sex: Male

DRUGS (2)
  1. DILAUDID TABLET [Suspect]
     Indication: PRODUCT USED FOR UNKNOWN INDICATION
     Dosage: 2 MG, UNK
     Route: 048
     Dates: start: 201210
  2. DILAUDID [Concomitant]
     Indication: PRODUCT USED FOR UNKNOWN INDICATION
     Dosage: UNK
     Route: 042
     Dates: start: 201210

REACTIONS (7)
  - Knee arthroplasty [Unknown]
  - Abdominal operation [Unknown]
  - Surgery [Unknown]
  - Drug dependence [Unknown]
  - Insomnia [Unknown]
  - Muscle spasms [Unknown]
  - Diarrhoea [Unknown]
